FAERS Safety Report 6906692-7 (Version None)
Quarter: 2010Q3

REPORT INFORMATION
  Report Type: 
  Country: None (occurrence: None)
  Receive Date: 20100804
  Receipt Date: 20100726
  Transmission Date: 20110219
  Serious: Yes (Other)
  Sender: FDA-Public Use
  Company Number: DE-AMGEN-QUU427797

PATIENT
  Age: 18 Year
  Sex: Female

DRUGS (2)
  1. ENBREL [Suspect]
     Indication: JUVENILE ARTHRITIS
     Dosage: STARTED ON UNKNOWN DATE, THEN PAUSED AND RESTARTED IN FEB-2010, THEN PERMANENTLY STOPPED
     Route: 058
  2. ENBREL [Suspect]
     Dates: start: 20080201

REACTIONS (1)
  - DYSPNOEA [None]
